FAERS Safety Report 5314363-6 (Version None)
Quarter: 2007Q2

REPORT INFORMATION
  Report Type: 
  Country: None (occurrence: None)
  Receive Date: 20070502
  Receipt Date: 20070423
  Transmission Date: 20071010
  Serious: Yes (Other)
  Sender: FDA-Public Use
  Company Number: PHEH2007US04267

PATIENT
  Age: 44 Year
  Sex: Female

DRUGS (4)
  1. ZELNORM [Suspect]
     Indication: IRRITABLE BOWEL SYNDROME
     Dosage: 6 MG, BID
     Route: 048
     Dates: start: 20040723, end: 20070112
  2. SYNTHROID [Concomitant]
     Indication: HYPOTHYROIDISM
     Dosage: 0.05 MG, QD
     Route: 048
  3. NEXIUM [Concomitant]
     Indication: DYSPEPSIA
     Dosage: 40 MG, QD
     Route: 048
     Dates: start: 20040101
  4. CELEBREX [Suspect]

REACTIONS (5)
  - CARDIAC DISORDER [None]
  - CEREBROVASCULAR ACCIDENT [None]
  - CHEST PAIN [None]
  - HYPERTENSION [None]
  - PAIN IN EXTREMITY [None]
